FAERS Safety Report 7693783-9 (Version None)
Quarter: 2011Q3

REPORT INFORMATION
  Report Type: 
  Country: None (occurrence: None)
  Receive Date: 20110819
  Receipt Date: 20110805
  Transmission Date: 20111222
  Serious: Yes (Other)
  Sender: FDA-Public Use
  Company Number: US-ELI_LILLY_AND_COMPANY-US201106000299

PATIENT
  Age: 80 Year
  Sex: Female

DRUGS (3)
  1. LEXAPRO [Concomitant]
  2. CYMBALTA [Suspect]
     Dosage: 30 MG, UNKNOWN
  3. CYMBALTA [Suspect]
     Indication: DEPRESSION
     Dosage: 60 MG, UNKNOWN

REACTIONS (3)
  - EOSINOPHILIA [None]
  - HEPATIC CIRRHOSIS [None]
  - AUTOIMMUNE HEPATITIS [None]
